FAERS Safety Report 6929720-1 (Version None)
Quarter: 2010Q3

REPORT INFORMATION
  Report Type: 
  Country: None (occurrence: None)
  Receive Date: 20100818
  Receipt Date: 20100811
  Transmission Date: 20110219
  Serious: Yes (Hospitalization)
  Sender: FDA-Public Use
  Company Number: US-BAYER-201019088BCC

PATIENT
  Age: 85 Year
  Sex: Female
  Weight: 66 kg

DRUGS (5)
  1. ALEVE (CAPLET) [Suspect]
     Indication: ARTHRALGIA
     Dosage: AS USED: 440/880 MG
     Route: 048
     Dates: end: 20100801
  2. ASPIRIN [Suspect]
     Indication: PRODUCT USED FOR UNKNOWN INDICATION
     Dosage: TOTAL DAILY DOSE: 81 MG  UNIT DOSE: 81 MG
     Route: 048
  3. VENLAFAXINE [Concomitant]
     Dosage: TOTAL DAILY DOSE: 1 DF  UNIT DOSE: 1 DF
  4. LISINOPRIL [Concomitant]
     Dosage: TOTAL DAILY DOSE: 40 MG  UNIT DOSE: 40 MG
  5. AMLODIPINE [Concomitant]
     Dosage: TOTAL DAILY DOSE: 1 DF  UNIT DOSE: 1 DF

REACTIONS (4)
  - ABDOMINAL DISCOMFORT [None]
  - DYSPEPSIA [None]
  - FAECES DISCOLOURED [None]
  - GASTRIC ULCER HAEMORRHAGE [None]
